FAERS Safety Report 20328583 (Version 5)
Quarter: 2025Q4

REPORT INFORMATION
  Report Type: Spontaneous
  Country: US (occurrence: US)
  Receive Date: 20220112
  Receipt Date: 20251103
  Transmission Date: 20260118
  Serious: No
  Sender: PFIZER
  Company Number: US-PFIZER INC-202101368279

PATIENT
  Age: 75 Year
  Sex: Female
  Weight: 81.65 kg

DRUGS (5)
  1. IBRANCE [Suspect]
     Active Substance: PALBOCICLIB
     Indication: Breast cancer female
     Dosage: 100 MG
     Dates: start: 20210912
  2. IBRANCE [Suspect]
     Active Substance: PALBOCICLIB
     Dosage: 100 MG
  3. ARIMIDEX [Concomitant]
     Active Substance: ANASTROZOLE
     Indication: Blood oestrogen
     Dosage: 1 MG, 1X/DAY
     Dates: start: 20210629
  4. ATENOLOL [Concomitant]
     Active Substance: ATENOLOL
     Indication: Hypertension
     Dosage: 25 MG, 1X/DAY
     Dates: start: 20201112
  5. LISINOPRIL [Concomitant]
     Active Substance: LISINOPRIL
     Indication: Hypertension
     Dosage: 10 MG, 1X/DAY
     Dates: start: 20201112

REACTIONS (3)
  - Nausea [Unknown]
  - Malaise [Unknown]
  - Blood test abnormal [Unknown]
